FAERS Safety Report 5876202-4 (Version None)
Quarter: 2008Q3

REPORT INFORMATION
  Report Type: 
  Country: None (occurrence: None)
  Receive Date: 20080908
  Receipt Date: 20080908
  Transmission Date: 20090109
  Serious: Yes (Other)
  Sender: FDA-Public Use
  Company Number: None

PATIENT
  Age: 47 Year
  Sex: Female
  Weight: 69.8539 kg

DRUGS (2)
  1. NAPROXEN [Suspect]
     Indication: NECK PAIN
     Dosage: TAKE ONE TABLET TWICE A DAY PO
     Route: 048
     Dates: start: 20080905, end: 20080905
  2. NAPROXEN [Suspect]
     Indication: RADICULOPATHY
     Dosage: TAKE ONE TABLET TWICE A DAY PO
     Route: 048
     Dates: start: 20080905, end: 20080905

REACTIONS (5)
  - ARTHRALGIA [None]
  - OEDEMA PERIPHERAL [None]
  - PITTING OEDEMA [None]
  - RASH MACULAR [None]
  - SWELLING FACE [None]
